FAERS Safety Report 6537009-8 (Version None)
Quarter: 2010Q1

REPORT INFORMATION
  Report Type: 
  Country: None (occurrence: None)
  Receive Date: 20100107
  Receipt Date: 20091223
  Transmission Date: 20100710
  Serious: Yes (Life-Threatening, Other)
  Sender: FDA-Public Use
  Company Number: 002021

PATIENT
  Age: 61 Year
  Sex: Female

DRUGS (5)
  1. VIMPAT [Suspect]
     Indication: EPILEPSY
     Dosage: (200 MG BID ORAL), (50 MG QD)
     Route: 048
     Dates: start: 20090201, end: 20090801
  2. LEVETIRACETAM [Concomitant]
  3. PREGABALIN [Concomitant]
  4. CARBAMAZEPINE [Concomitant]
  5. CLONAZEPAM [Concomitant]

REACTIONS (8)
  - AMNESIA [None]
  - CONVULSION [None]
  - CRYING [None]
  - DEPRESSION [None]
  - FATIGUE [None]
  - MOOD ALTERED [None]
  - SUICIDAL IDEATION [None]
  - VISUAL ACUITY REDUCED [None]
